FAERS Safety Report 8807259 (Version 1)
Quarter: 2012Q4

REPORT INFORMATION
  Report Type: 
  Country: US (occurrence: US)
  Receive Date: 20120925
  Receipt Date: 20120925
  Transmission Date: 20130627
  Serious: No
  Sender: FDA-Public Use
  Company Number: US-ASTRAZENECA-2012SE73292

PATIENT
  Age: 77 Year
  Sex: Male
  Weight: 82.6 kg

DRUGS (8)
  1. TOPROL XL [Suspect]
     Indication: BLOOD PRESSURE ABNORMAL
     Route: 048
     Dates: start: 20120904
  2. TOPROL XL [Suspect]
     Indication: HYPERTENSION
     Route: 048
     Dates: start: 20120904
  3. TOPROL XL [Suspect]
     Indication: HEART RATE ABNORMAL
     Route: 048
     Dates: start: 20120904
  4. METOPROLOL ER [Suspect]
     Indication: HYPERTENSION
     Route: 048
     Dates: start: 20120604, end: 201208
  5. METOPROLOL ER [Suspect]
     Indication: HEART RATE ABNORMAL
     Route: 048
     Dates: start: 20120604, end: 201208
  6. METOPROLOL SUCCINATE [Suspect]
     Indication: BLOOD PRESSURE ABNORMAL
     Route: 048
     Dates: start: 20120711, end: 20120904
  7. METOPROLOL SUCCINATE [Suspect]
     Indication: HEART RATE DECREASED
     Route: 048
     Dates: start: 20120711, end: 20120904
  8. SIMVASTATIN [Concomitant]
     Indication: BLOOD CHOLESTEROL ABNORMAL

REACTIONS (6)
  - Weight decreased [Unknown]
  - Decreased appetite [Recovered/Resolved]
  - Alopecia [Unknown]
  - Aphagia [Unknown]
  - Alopecia [Unknown]
  - Nausea [Unknown]
